FAERS Safety Report 9813366 (Version 1)
Quarter: 2014Q1

REPORT INFORMATION
  Report Type: Spontaneous
  Country: US (occurrence: US)
  Receive Date: 20140113
  Receipt Date: 20140113
  Transmission Date: 20141002
  Serious: No
  Sender: FDA-Public Use
  Company Number: US-BAYER-2014-004451

PATIENT
  Age: 67 Year
  Sex: Male
  Weight: 90.7 kg

DRUGS (4)
  1. ALEVE TABLET [Suspect]
     Dosage: UNK
     Route: 048
     Dates: start: 201002
  2. ALEVE TABLET [Suspect]
     Dosage: 2-4, QD
  3. BAYER ASPIRIN REGIMEN ADULT LOW STRENGTH [Concomitant]
     Dosage: UNK UNK, QD
  4. TYLENOL [PARACETAMOL] [Concomitant]

REACTIONS (4)
  - Erectile dysfunction [Not Recovered/Not Resolved]
  - Dyspepsia [Not Recovered/Not Resolved]
  - Incorrect drug administration duration [None]
  - Incorrect dose administered [None]
